FAERS Safety Report 19102731 (Version 1)
Quarter: 2021Q2

REPORT INFORMATION
  Report Type: Spontaneous
  Country: US (occurrence: US)
  Receive Date: 20210407
  Receipt Date: 20210407
  Transmission Date: 20210717
  Serious: No
  Sender: FDA-Public Use
  Company Number: None

PATIENT
  Age: 57 Year
  Sex: Female
  Weight: 61.65 kg

DRUGS (11)
  1. LORATADINE. [Concomitant]
     Active Substance: LORATADINE
  2. ONDANSETRON [Concomitant]
     Active Substance: ONDANSETRON
  3. ALEVE [Concomitant]
     Active Substance: NAPROXEN SODIUM
  4. CYCLOBENZAPRINE. [Concomitant]
     Active Substance: CYCLOBENZAPRINE
  5. LISINOPRIL. [Concomitant]
     Active Substance: LISINOPRIL
  6. XANAX [Concomitant]
     Active Substance: ALPRAZOLAM
  7. ADVAIR DISKUS [Concomitant]
     Active Substance: FLUTICASONE PROPIONATE\SALMETEROL XINAFOATE
  8. FERROUS  GLUCONATE [Concomitant]
     Active Substance: FERROUS GLUCONATE
  9. LIDOCAINE. [Concomitant]
     Active Substance: LIDOCAINE
  10. CAPECITABINE. [Suspect]
     Active Substance: CAPECITABINE
     Indication: COLON CANCER
     Dosage: ?          OTHER FREQUENCY:BID 14/21 DAYS;?
     Route: 048
     Dates: start: 20201210, end: 20210301
  11. FLUTICASONE NS [Concomitant]

REACTIONS (2)
  - Burning sensation [None]
  - Oral discomfort [None]

NARRATIVE: CASE EVENT DATE: 20210301
